FAERS Safety Report 4324920-1 (Version None)
Quarter: 2004Q1

REPORT INFORMATION
  Report Type: 
  Country: None (occurrence: None)
  Receive Date: 20040322
  Receipt Date: 20040310
  Transmission Date: 20041129
  Serious: Yes (Hospitalization)
  Sender: FDA-Public Use
  Company Number: 2003AP04087

PATIENT
  Age: 71 Year
  Sex: Male

DRUGS (14)
  1. IRESSA [Suspect]
     Indication: LUNG CARCINOMA CELL TYPE UNSPECIFIED RECURRENT
     Dosage: 250 MG DAILY PO
     Route: 048
     Dates: start: 20031029, end: 20031110
  2. LOXONIN [Concomitant]
  3. ZANTAC [Concomitant]
  4. DECADRON [Concomitant]
  5. MUCOSTA [Concomitant]
  6. SENNARIDE [Concomitant]
  7. ADALAT [Concomitant]
  8. LASIX /SWE [Concomitant]
  9. BLOOD TRANSFUSION [Concomitant]
  10. RADIATION THERAPY [Concomitant]
  11. DOCETAXEL [Concomitant]
  12. CARBOPLATIN [Concomitant]
  13. VINORELBINE TARTRATE [Concomitant]
  14. PACLITAXEL [Concomitant]

REACTIONS (2)
  - PERFORMANCE STATUS DECREASED [None]
  - RENAL IMPAIRMENT [None]
